FAERS Safety Report 25392670 (Version 2)
Quarter: 2025Q3

REPORT INFORMATION
  Report Type: Report from Study
  Country: EU (occurrence: EU)
  Receive Date: 20250603
  Receipt Date: 20250905
  Transmission Date: 20251021
  Serious: Yes (Hospitalization)
  Sender: JOHNSON AND JOHNSON
  Company Number: EU-JNJFOC-20250521650

PATIENT
  Age: 49 Year
  Sex: Female
  Weight: 75 kg

DRUGS (2)
  1. SPRAVATO [Suspect]
     Active Substance: ESKETAMINE
     Indication: Depression
     Route: 045
     Dates: start: 20230530, end: 20230530
  2. SPRAVATO [Suspect]
     Active Substance: ESKETAMINE
     Route: 045
     Dates: start: 20230602, end: 20250121

REACTIONS (2)
  - Bursitis [Recovered/Resolved]
  - Tendon injury [Recovered/Resolved]

NARRATIVE: CASE EVENT DATE: 20250128
